FAERS Safety Report 7687145-8 (Version None)
Quarter: 2011Q3

REPORT INFORMATION
  Report Type: 
  Country: None (occurrence: None)
  Receive Date: 20110816
  Receipt Date: 20110810
  Transmission Date: 20111222
  Serious: Yes (Disabling)
  Sender: FDA-Public Use
  Company Number: PHHY2011CA72165

PATIENT
  Sex: Female

DRUGS (4)
  1. VITAMIN D [Concomitant]
  2. ZOLEDRONOC ACID [Suspect]
     Indication: OSTEOPOROSIS
     Dosage: UNK
     Route: 042
     Dates: start: 20100825
  3. SYNTHROID [Concomitant]
  4. CALCIUM CARBONATE [Concomitant]

REACTIONS (5)
  - NEURALGIA [None]
  - PAIN [None]
  - HYPOAESTHESIA [None]
  - MALAISE [None]
  - PARAESTHESIA [None]
